FAERS Safety Report 8002167-5 (Version None)
Quarter: 2011Q4

REPORT INFORMATION
  Report Type: 
  Country: None (occurrence: None)
  Receive Date: 20111219
  Receipt Date: 20111205
  Transmission Date: 20120403
  Serious: Yes (Life-Threatening, Other)
  Sender: FDA-Public Use
  Company Number: 2011MA017309

PATIENT
  Age: 22 Year
  Sex: Male

DRUGS (1)
  1. PHENYTOIN [Suspect]
     Indication: CONVULSION

REACTIONS (9)
  - SPEECH DISORDER [None]
  - HEPATIC ENZYME INCREASED [None]
  - SPLENOMEGALY [None]
  - DRUG RASH WITH EOSINOPHILIA AND SYSTEMIC SYMPTOMS [None]
  - URINE OUTPUT DECREASED [None]
  - ALTERED STATE OF CONSCIOUSNESS [None]
  - MENINGITIS ASEPTIC [None]
  - LYMPHADENOPATHY [None]
  - HEPATOMEGALY [None]
